FAERS Safety Report 25051068 (Version 2)
Quarter: 2025Q1

REPORT INFORMATION
  Report Type: Report from Study
  Country: US (occurrence: US)
  Receive Date: 20250307
  Receipt Date: 20250328
  Transmission Date: 20250408
  Serious: Yes (Hospitalization, Other)
  Sender: ABBVIE
  Company Number: US-ABBVIE-6160210

PATIENT
  Age: 56 Year
  Sex: Female

DRUGS (1)
  1. RINVOQ [Suspect]
     Active Substance: UPADACITINIB
     Indication: Product used for unknown indication
     Route: 048
     Dates: start: 20250205

REACTIONS (4)
  - Ankle fracture [Unknown]
  - Fall [Unknown]
  - Ligament sprain [Unknown]
  - Muscle strain [Unknown]

NARRATIVE: CASE EVENT DATE: 20250201
